FAERS Safety Report 7937528-3 (Version None)
Quarter: 2011Q4

REPORT INFORMATION
  Report Type: 
  Country: None (occurrence: None)
  Receive Date: 20111123
  Receipt Date: 20111115
  Transmission Date: 20120403
  Serious: Yes (Hospitalization)
  Sender: FDA-Public Use
  Company Number: DE-UCBSA-045862

PATIENT
  Age: 62 Year
  Sex: Female

DRUGS (1)
  1. NEUPRO [Suspect]
     Indication: FIBROMYALGIA
     Dosage: 4 MG/24H
     Dates: end: 20111001

REACTIONS (4)
  - DYSPNOEA [None]
  - ANGIOEDEMA [None]
  - URTICARIA [None]
  - LIP SWELLING [None]
